FAERS Safety Report 17661616 (Version 2)
Quarter: 2020Q2

REPORT INFORMATION
  Report Type: Spontaneous
  Country: PT (occurrence: PT)
  Receive Date: 20200413
  Receipt Date: 20200420
  Transmission Date: 20200713
  Serious: Yes (Other)
  Sender: FDA-Public Use
  Company Number: PT-FERRINGPH-2019FE07822

PATIENT
  Age: 36 Year
  Sex: Female

DRUGS (2)
  1. HCG [Suspect]
     Active Substance: GONADOTROPHIN, CHORIONIC
     Indication: OVULATION INDUCTION
     Route: 065
  2. MENOTROPHIN HP [Suspect]
     Active Substance: MENOTROPINS
     Indication: OVULATION INDUCTION
     Route: 065

REACTIONS (1)
  - Hypothyroidism [Recovered/Resolved]
